FAERS Safety Report 12920797 (Version 1)
Quarter: 2016Q4

REPORT INFORMATION
  Report Type: Report from Study
  Country: US (occurrence: US)
  Receive Date: 20161108
  Receipt Date: 20161108
  Transmission Date: 20170207
  Serious: No
  Sender: FDA-Public Use
  Company Number: PHEH2016US028725

PATIENT
  Sex: Male

DRUGS (1)
  1. DEXMETHYLPHENIDATE HYDROCHLORIDE. [Suspect]
     Active Substance: DEXMETHYLPHENIDATE HYDROCHLORIDE
     Indication: PRODUCT USED FOR UNKNOWN INDICATION
     Dosage: 10 MG,
     Route: 065

REACTIONS (10)
  - Fall [Unknown]
  - Pruritus [Unknown]
  - Urticaria [Unknown]
  - Heart rate increased [Unknown]
  - Rash [Unknown]
  - Fear [Unknown]
  - Paraesthesia [Unknown]
  - Hypersensitivity [Unknown]
  - Lip swelling [Unknown]
  - Dyspnoea [Unknown]
